FAERS Safety Report 7904757-4 (Version None)
Quarter: 2011Q4

REPORT INFORMATION
  Report Type: 
  Country: None (occurrence: None)
  Receive Date: 20111109
  Receipt Date: 20111031
  Transmission Date: 20120403
  Serious: Yes (Other)
  Sender: FDA-Public Use
  Company Number: US-BAYER-2011-034309

PATIENT
  Age: 35 Year
  Sex: Female
  Weight: 97.052 kg

DRUGS (6)
  1. NSAID'S [Concomitant]
     Dosage: UNK
     Dates: start: 20050101
  2. ALBUTEROL [Concomitant]
     Indication: WHEEZING
  3. ROBITUSSIN A-C [CODEINE PHOSPHATE,GUAIFENESIN,PHENIRAMINE MALEATE] [Concomitant]
     Dosage: UNK UNK, PRN
  4. YASMIN [Suspect]
     Indication: CONTRACEPTION
     Dosage: UNK
     Dates: start: 20070123, end: 20080317
  5. LORAZEPAM [Concomitant]
     Indication: ANXIETY
     Dosage: UNK UNK, BID
     Dates: start: 20050101
  6. ALBUTEROL [Concomitant]
     Indication: COUGH
     Dosage: UNK UNK, PRN

REACTIONS (4)
  - DEEP VEIN THROMBOSIS [None]
  - PAIN [None]
  - ANXIETY [None]
  - FEAR [None]
